FAERS Safety Report 24719591 (Version 1)
Quarter: 2024Q4

REPORT INFORMATION
  Report Type: Spontaneous
  Country: US (occurrence: US)
  Receive Date: 20241211
  Receipt Date: 20241211
  Transmission Date: 20250115
  Serious: Yes (Other)
  Sender: ALEXION PHARMACEUTICALS
  Company Number: US-AstraZeneca-CH-00759149AP

PATIENT
  Age: 41 Year

DRUGS (1)
  1. SAPHNELO [Suspect]
     Active Substance: ANIFROLUMAB-FNIA
     Dosage: UNK
     Route: 065

REACTIONS (14)
  - Syncope [Unknown]
  - Hypotension [Unknown]
  - Blood pressure increased [Unknown]
  - Tremor [Unknown]
  - Vision blurred [Not Recovered/Not Resolved]
  - Confusional state [Unknown]
  - Headache [Unknown]
  - Heart rate increased [Unknown]
  - Dizziness [Unknown]
  - Ear infection [Unknown]
  - Sinusitis [Unknown]
  - Pruritus [Unknown]
  - Swelling [Unknown]
  - Inappropriate schedule of product administration [Unknown]
